FAERS Safety Report 9006897 (Version 1)
Quarter: 2013Q1

REPORT INFORMATION
  Report Type: Spontaneous
  Country: JP (occurrence: JP)
  Receive Date: 20130110
  Receipt Date: 20130110
  Transmission Date: 20140127
  Serious: Yes (Death, Other)
  Sender: FDA-Public Use
  Company Number: JP-PFIZER INC-2013009665

PATIENT
  Age: 65 Year
  Sex: Male
  Weight: 56.4 kg

DRUGS (3)
  1. LYRICA [Suspect]
     Indication: PAIN
     Dosage: 25 MG, 1X/DAY
     Route: 048
  2. LYRICA [Suspect]
     Dosage: 12.5 MG, 1X/DAY
     Route: 048
  3. CODEINE PHOSPHATE [Concomitant]
     Dosage: 20 MG, 4X/DAY
     Route: 048

REACTIONS (7)
  - Hepatic failure [Fatal]
  - Hepatic encephalopathy [Unknown]
  - Altered state of consciousness [Unknown]
  - Somnolence [Unknown]
  - Dizziness [Recovering/Resolving]
  - Balance disorder [Recovering/Resolving]
  - Fall [Recovering/Resolving]
